FAERS Safety Report 18484735 (Version 1)
Quarter: 2020Q4

REPORT INFORMATION
  Report Type: Spontaneous
  Country: CA (occurrence: CA)
  Receive Date: 20201110
  Receipt Date: 20201110
  Transmission Date: 20210114
  Serious: Yes (Death, Other)
  Sender: FDA-Public Use
  Company Number: CA-GLAXOSMITHKLINE-CA2020GSK221945

PATIENT
  Sex: Male

DRUGS (3)
  1. AVANDIA [Suspect]
     Active Substance: ROSIGLITAZONE MALEATE
     Indication: DIABETES MELLITUS
     Dosage: UNK, QD
     Route: 048
     Dates: start: 2001, end: 2016
  2. AVANDIA [Suspect]
     Active Substance: ROSIGLITAZONE MALEATE
     Dosage: 8 MG
     Route: 048
     Dates: start: 20081122
  3. AVANDIA [Suspect]
     Active Substance: ROSIGLITAZONE MALEATE
     Dosage: 8 MG, QD
     Route: 048
     Dates: start: 20030616, end: 20080423

REACTIONS (9)
  - Atrial fibrillation [Unknown]
  - Cardiac disorder [Unknown]
  - Coronary artery disease [Unknown]
  - Angioplasty [Unknown]
  - Coronary artery bypass [Unknown]
  - Death [Fatal]
  - Myocardial ischaemia [Unknown]
  - Stent placement [Unknown]
  - Vascular graft [Unknown]
